FAERS Safety Report 11971952 (Version 2)
Quarter: 2016Q1

REPORT INFORMATION
  Report Type: Spontaneous
  Country: US (occurrence: US)
  Receive Date: 20160128
  Receipt Date: 20160302
  Transmission Date: 20160526
  Serious: No
  Sender: FDA-Public Use
  Company Number: US-PFIZER INC-2014031108

PATIENT
  Age: 49 Year
  Sex: Female
  Weight: 68.27 kg

DRUGS (14)
  1. LYRICA [Suspect]
     Active Substance: PREGABALIN
     Indication: PAIN
     Dosage: 200 MG, 3X/DAY
     Route: 048
  2. LYRICA [Suspect]
     Active Substance: PREGABALIN
     Indication: INTERVERTEBRAL DISC PROTRUSION
  3. LIORESAL [Concomitant]
     Active Substance: BACLOFEN
     Dosage: 10 MG, 4X/DAY (EVERY 6 HOURS)
     Route: 048
  4. LYRICA [Suspect]
     Active Substance: PREGABALIN
     Indication: FIBROMYALGIA
     Dosage: 100 MG, 6X/DAY
     Route: 048
  5. LYRICA [Suspect]
     Active Substance: PREGABALIN
     Indication: MULTIPLE SCLEROSIS
     Dosage: 200 MG, 2X/DAY
  6. NUVIGIL [Concomitant]
     Active Substance: ARMODAFINIL
     Dosage: 50 MG, DAILY
     Route: 048
  7. MS CONTIN [Concomitant]
     Active Substance: MORPHINE SULFATE
     Dosage: 30 MG, 3X/DAY
     Route: 048
  8. OXY-IR [Concomitant]
     Active Substance: OXYCODONE HYDROCHLORIDE
     Dosage: 15 MG, AS NEEDED (TAKE 15 MG BY MOUTH 2 TIMES DAILY AS NEEDED)
     Route: 048
  9. PREMPRO [Concomitant]
     Active Substance: ESTROGENS, CONJUGATED\MEDROXYPROGESTERONE ACETATE
     Dosage: 1 DF, DAILY (ESTROGENS CONJUGATED 0.45 MG, MEDROXYPROGESTERONE ACETATE 1.5 MG)
     Route: 048
  10. LYRICA [Suspect]
     Active Substance: PREGABALIN
     Indication: LUMBAR RADICULOPATHY
  11. LYRICA [Suspect]
     Active Substance: PREGABALIN
     Indication: OSTEOARTHRITIS
  12. LIDODERM [Concomitant]
     Active Substance: LIDOCAINE
     Dosage: UNK(3 PATCH BY TRANSDERMAL ROUTE PUT 3 PATCHES 12 HOURS ON 12 HOURS OFF)
     Route: 062
  13. PROZAC [Concomitant]
     Active Substance: FLUOXETINE HYDROCHLORIDE
     Dosage: 10 MG, DAILY
     Route: 048
  14. KLONOPIN [Concomitant]
     Active Substance: CLONAZEPAM
     Indication: ANXIETY
     Dosage: 0.5 MG, AS NEEDED (TWO TIMES A DAY)
     Route: 048

REACTIONS (8)
  - Feeling abnormal [Unknown]
  - Hyperreflexia [Unknown]
  - Speech disorder [Unknown]
  - Spondylolisthesis [Unknown]
  - Gait disturbance [Unknown]
  - Intentional product misuse [Unknown]
  - Balance disorder [Unknown]
  - Abdominal pain upper [Unknown]

NARRATIVE: CASE EVENT DATE: 20150612
